FAERS Safety Report 6001160-1 (Version None)
Quarter: 2008Q4

REPORT INFORMATION
  Report Type: 
  Country: None (occurrence: None)
  Receive Date: 20081215
  Receipt Date: 20071126
  Transmission Date: 20090506
  Serious: No
  Sender: FDA-Public Use
  Company Number: US-AMGEN-KDL250118

PATIENT
  Sex: Female
  Weight: 54 kg

DRUGS (10)
  1. ENBREL [Suspect]
     Indication: RHEUMATOID ARTHRITIS
     Route: 058
     Dates: start: 19990101
  2. PLAQUENIL [Concomitant]
     Route: 048
  3. METHOTREXATE [Concomitant]
     Route: 048
     Dates: start: 19980101
  4. FLUTICASONE PROPIONATE [Concomitant]
  5. ADVAIR DISKUS 250/50 [Concomitant]
  6. FOLIC ACID [Concomitant]
     Route: 048
  7. ACIPHEX [Concomitant]
     Route: 048
  8. VITAMIN D [Concomitant]
     Route: 048
  9. MULTI-VITAMINS [Concomitant]
     Route: 048
  10. CICLOPIROX [Concomitant]

REACTIONS (3)
  - INJECTION SITE IRRITATION [None]
  - INJECTION SITE PAIN [None]
  - ONYCHOMYCOSIS [None]
